FAERS Safety Report 11819111 (Version 1)
Quarter: 2015Q4

REPORT INFORMATION
  Report Type: Spontaneous
  Country: US (occurrence: None)
  Receive Date: 20151209
  Receipt Date: 20151209
  Transmission Date: 20160305
  Serious: Yes (Hospitalization)
  Sender: FDA-Public Use
  Company Number: None

PATIENT
  Age: 63 Year
  Sex: Female
  Weight: 83 kg

DRUGS (23)
  1. NORVASC [Concomitant]
     Active Substance: AMLODIPINE BESYLATE
  2. ROCALTROL [Concomitant]
     Active Substance: CALCITRIOL
  3. SAMELOR [Concomitant]
  4. PROVENTIL [Concomitant]
     Active Substance: ALBUTEROL
  5. COREG [Concomitant]
     Active Substance: CARVEDILOL
  6. FENTANYL. [Concomitant]
     Active Substance: FENTANYL
  7. SYNTHROID [Concomitant]
     Active Substance: LEVOTHYROXINE SODIUM
  8. MECULOR [Concomitant]
  9. XANAFIEX [Concomitant]
  10. FLOVENT [Concomitant]
     Active Substance: FLUTICASONE PROPIONATE
  11. ARAVA [Concomitant]
     Active Substance: LEFLUNOMIDE
  12. DILFUSONE [Concomitant]
  13. APAP [Concomitant]
     Active Substance: ACETAMINOPHEN
  14. LIDODERM [Concomitant]
     Active Substance: LIDOCAINE
  15. HUMULIN 70/30 [Suspect]
     Active Substance: INSULIN HUMAN
     Indication: DIABETES MELLITUS
     Dosage: QAM
     Route: 058
  16. LIPITOR [Concomitant]
     Active Substance: ATORVASTATIN CALCIUM
  17. VALIUM [Concomitant]
     Active Substance: DIAZEPAM
  18. FEBUXOSTAT. [Concomitant]
     Active Substance: FEBUXOSTAT
  19. FOLVITE [Concomitant]
     Active Substance: FOLIC ACID
  20. ATARAX [Concomitant]
     Active Substance: HYDROXYZINE\HYDROXYZINE HYDROCHLORIDE
  21. ECOTRIN [Concomitant]
     Active Substance: ASPIRIN
  22. BENADRYL [Concomitant]
     Active Substance: DIPHENHYDRAMINE HYDROCHLORIDE
  23. EPOETIN [Concomitant]
     Active Substance: ERYTHROPOIETIN

REACTIONS (3)
  - Hemiparesis [None]
  - Hypoglycaemia [None]
  - Urinary tract infection [None]

NARRATIVE: CASE EVENT DATE: 20151021
